FAERS Safety Report 12990315 (Version 1)
Quarter: 2016Q4

REPORT INFORMATION
  Report Type: Spontaneous
  Country: DE (occurrence: DE)
  Receive Date: 20161201
  Receipt Date: 20161201
  Transmission Date: 20170207
  Serious: Yes (Other)
  Sender: FDA-Public Use
  Company Number: DE-WEST-WARD PHARMACEUTICALS CORP.-DE-H14001-16-02544

PATIENT

DRUGS (3)
  1. DOXORUBICIN [Suspect]
     Active Substance: DOXORUBICIN
     Indication: SOFT TISSUE SARCOMA
     Dosage: 60-75 MG/M2 DAY 1
     Route: 065
  2. DEXRAZOXANE. [Suspect]
     Active Substance: DEXRAZOXANE
     Indication: SOFT TISSUE SARCOMA
     Dosage: 30 MIN BEFORE THE START OF DOXORUBICIN OVER A PERIOD OF 15 MIN IN TENFOLD CONCENTRATION
     Route: 042
  3. DACARBAZINE. [Concomitant]
     Active Substance: DACARBAZINE
     Indication: SOFT TISSUE SARCOMA
     Route: 065

REACTIONS (2)
  - Cardiotoxicity [Recovered/Resolved]
  - Ejection fraction decreased [Recovering/Resolving]
